FAERS Safety Report 7212592-8 (Version None)
Quarter: 2011Q1

REPORT INFORMATION
  Report Type: 
  Country: None (occurrence: None)
  Receive Date: 20110106
  Receipt Date: 20110104
  Transmission Date: 20110831
  Serious: No
  Sender: FDA-Public Use
  Company Number: US-PFIZER INC-2011001585

PATIENT
  Age: 55 Year
  Sex: Male

DRUGS (1)
  1. GEODON [Suspect]
     Dosage: 80 MG, 2X/DAY

REACTIONS (1)
  - BLOOD SODIUM DECREASED [None]
